FAERS Safety Report 16395481 (Version 1)
Quarter: 2019Q2

REPORT INFORMATION
  Report Type: Spontaneous
  Country: US (occurrence: US)
  Receive Date: 20190605
  Receipt Date: 20190605
  Transmission Date: 20190711
  Serious: Yes (Hospitalization)
  Sender: FDA-Public Use
  Company Number: US-009507513-1905USA014224

PATIENT
  Age: 44 Year
  Sex: Female

DRUGS (1)
  1. NEXPLANON [Suspect]
     Active Substance: ETONOGESTREL
     Indication: CONTRACEPTION
     Dosage: 1 IMPLANT, FREQUENCY REPORTED AS ^ONE MONTH AFTER INSERTION^
     Route: 059
     Dates: start: 201503, end: 201504

REACTIONS (4)
  - Menstrual disorder [Recovered/Resolved]
  - Emotional disorder [Recovered/Resolved]
  - Hormone level abnormal [Recovered/Resolved]
  - Uterine disorder [Recovered/Resolved]

NARRATIVE: CASE EVENT DATE: 201503
